FAERS Safety Report 8991377 (Version 1)
Quarter: 2012Q4

REPORT INFORMATION
  Report Type: 
  Country: IT (occurrence: IT)
  Receive Date: 20121229
  Receipt Date: 20121229
  Transmission Date: 20130627
  Serious: Yes (Hospitalization)
  Sender: FDA-Public Use
  Company Number: IT-009507513-2011SP047595

PATIENT
  Age: 40 Year
  Sex: Male

DRUGS (6)
  1. PEGINTERFERON ALFA-2B [Suspect]
     Indication: CHRONIC HEPATITIS C
     Dates: start: 201006, end: 20110326
  2. RIBAVIRIN [Suspect]
     Indication: CHRONIC HEPATITIS C
     Dates: start: 201006
  3. DAPTOMYCIN [Interacting]
     Indication: ANTIBIOTIC THERAPY
     Dosage: 500 mg, QD
     Route: 042
  4. DAPTOMYCIN [Interacting]
     Indication: CHRONIC HEPATITIS C
     Dosage: 500 mg,second dose
     Route: 042
  5. LEVOFLOXACIN [Concomitant]
     Indication: ANTIBIOTIC THERAPY
     Dosage: 750 mg, QD
     Route: 042
  6. PIPERACILLIN SODIUM (+) TAZOBACTAM SODIUM [Concomitant]
     Indication: ANTIBIOTIC THERAPY
     Dosage: 4.5 g, q6h
     Route: 042

REACTIONS (1)
  - Rhabdomyolysis [Unknown]
